FAERS Safety Report 16036623 (Version 1)
Quarter: 2019Q1

REPORT INFORMATION
  Report Type: Report from Study
  Country: US (occurrence: US)
  Receive Date: 20190305
  Receipt Date: 20190305
  Transmission Date: 20190418
  Serious: Yes (Hospitalization, Other)
  Sender: FDA-Public Use
  Company Number: US-TESARO-2019-TSO00112-US

PATIENT
  Sex: Female

DRUGS (3)
  1. ZEJULA [Interacting]
     Active Substance: NIRAPARIB
     Dosage: 100 UNK, UNK
     Route: 048
  2. ZEJULA [Suspect]
     Active Substance: NIRAPARIB
     Indication: PRODUCT USED FOR UNKNOWN INDICATION
     Dosage: 200 MG, QD
     Route: 048
     Dates: start: 20181025
  3. KEYTRUDA [Interacting]
     Active Substance: PEMBROLIZUMAB
     Indication: PRODUCT USED FOR UNKNOWN INDICATION

REACTIONS (9)
  - Dyspnoea [Unknown]
  - Dehydration [Unknown]
  - Drug intolerance [Unknown]
  - Weight decreased [Unknown]
  - Drug interaction [Unknown]
  - Malaise [Unknown]
  - Fatigue [Unknown]
  - Autoimmune thyroiditis [Unknown]
  - Underdose [Unknown]
